FAERS Safety Report 6402559-1 (Version None)
Quarter: 2009Q4

REPORT INFORMATION
  Report Type: 
  Country: None (occurrence: None)
  Receive Date: 20091015
  Receipt Date: 20091009
  Transmission Date: 20100525
  Serious: Yes (Hospitalization, Other)
  Sender: FDA-Public Use
  Company Number: US-MERCK-0910USA01267

PATIENT
  Age: 71 Year
  Sex: Female

DRUGS (2)
  1. FOSAMAX [Suspect]
     Indication: OSTEOPENIA
     Route: 048
     Dates: start: 19961001, end: 20091001
  2. LIPITOR [Concomitant]
     Route: 065

REACTIONS (4)
  - ARTHROPATHY [None]
  - DRUG INEFFECTIVE [None]
  - FEMUR FRACTURE [None]
  - OSTEOPOROSIS [None]
